FAERS Safety Report 23784892 (Version 1)
Quarter: 2024Q2

REPORT INFORMATION
  Report Type: Spontaneous
  Country: US (occurrence: US)
  Receive Date: 20240425
  Receipt Date: 20240425
  Transmission Date: 20240716
  Serious: No
  Sender: FDA-Public Use
  Company Number: US-PFIZER INC-PV202400053751

PATIENT
  Sex: Male

DRUGS (1)
  1. SILVADENE [Suspect]
     Active Substance: SILVER SULFADIAZINE
     Indication: Blister
     Dosage: UNK

REACTIONS (4)
  - Erythema [Unknown]
  - Skin discolouration [Unknown]
  - Off label use [Unknown]
  - Drug effective for unapproved indication [Unknown]
